FAERS Safety Report 16264135 (Version 1)
Quarter: 2019Q2

REPORT INFORMATION
  Report Type: Spontaneous
  Country: US (occurrence: US)
  Receive Date: 20190501
  Receipt Date: 20190501
  Transmission Date: 20190711
  Serious: Yes (Disabling)
  Sender: FDA-Public Use
  Company Number: None

PATIENT
  Age: 40 Year
  Sex: Female
  Weight: 51.75 kg

DRUGS (4)
  1. AMBIEN [Concomitant]
     Active Substance: ZOLPIDEM TARTRATE
  2. TIZANIDINE. [Concomitant]
     Active Substance: TIZANIDINE
  3. AIMOVIG [Suspect]
     Active Substance: ERENUMAB-AOOE
     Indication: MIGRAINE PROPHYLAXIS
     Dosage: ?          QUANTITY:1 INJECTION(S);OTHER FREQUENCY:ONCE MONTHLY;?
     Route: 058
  4. RIZATRIPTAN. [Concomitant]
     Active Substance: RIZATRIPTAN

REACTIONS (12)
  - Vomiting [None]
  - Crying [None]
  - Depression [None]
  - Nausea [None]
  - Aura [None]
  - Hypotension [None]
  - Decreased appetite [None]
  - Diarrhoea [None]
  - Oral candidiasis [None]
  - Lethargy [None]
  - Migraine [None]
  - Lip swelling [None]

NARRATIVE: CASE EVENT DATE: 20190423
